FAERS Safety Report 8238777-X (Version None)
Quarter: 2012Q1

REPORT INFORMATION
  Report Type: 
  Country: None (occurrence: None)
  Receive Date: 20120327
  Receipt Date: 20120319
  Transmission Date: 20120608
  Serious: Yes (Other)
  Sender: FDA-Public Use
  Company Number: US-ELI_LILLY_AND_COMPANY-US201112005658

PATIENT
  Sex: Female
  Weight: 59 kg

DRUGS (1)
  1. FORTEO [Suspect]
     Indication: OSTEOPOROSIS
     Dosage: UNK UNK, UNKNOWN
     Route: 065
     Dates: end: 20120101

REACTIONS (6)
  - DYSPNOEA [None]
  - PAIN [None]
  - MEDICATION ERROR [None]
  - VIRAL INFECTION [None]
  - OXYGEN SATURATION DECREASED [None]
  - LUNG INFECTION [None]
